FAERS Safety Report 20406615 (Version 6)
Quarter: 2022Q1

REPORT INFORMATION
  Report Type: Report from Study
  Country: MX (occurrence: MX)
  Receive Date: 20220131
  Receipt Date: 20220316
  Transmission Date: 20220423
  Serious: Yes (Other)
  Sender: FDA-Public Use
  Company Number: MX-NOVARTISPH-NVSC2022MX016149

PATIENT
  Age: 43 Year
  Sex: Male
  Weight: 105 kg

DRUGS (10)
  1. ELTROMBOPAG OLAMINE [Suspect]
     Active Substance: ELTROMBOPAG OLAMINE
     Indication: Myelodysplastic syndrome
     Dosage: UNK
     Route: 065
     Dates: start: 20211120
  2. ELTROMBOPAG OLAMINE [Suspect]
     Active Substance: ELTROMBOPAG OLAMINE
     Indication: Aplastic anaemia
     Dosage: (2 (50 MG)) EVERY 24 HOURS
     Route: 048
     Dates: start: 20211120
  3. ELTROMBOPAG OLAMINE [Suspect]
     Active Substance: ELTROMBOPAG OLAMINE
     Indication: Platelet count increased
     Dosage: 1 DF OF (50 MG), 4 TIMES A DAY
     Route: 048
     Dates: start: 202111
  4. ELTROMBOPAG OLAMINE [Suspect]
     Active Substance: ELTROMBOPAG OLAMINE
     Dosage: 50 MG, QD (4 DF, 50 MG)
     Route: 048
     Dates: start: 20211120
  5. ELTROMBOPAG OLAMINE [Suspect]
     Active Substance: ELTROMBOPAG OLAMINE
     Dosage: 4 DF (50 MG), QD
     Route: 048
     Dates: start: 20220101
  6. CYCLOSPORINE [Suspect]
     Active Substance: CYCLOSPORINE
     Indication: Myelodysplastic syndrome
     Dosage: 100 MG 50 ML (SOLUTION)
     Route: 048
     Dates: start: 20220112
  7. CYCLOSPORINE [Suspect]
     Active Substance: CYCLOSPORINE
     Indication: Aplastic anaemia
     Dosage: 1 DF OF (100 MG), BID
     Route: 048
     Dates: start: 202111
  8. CYCLOSPORINE [Suspect]
     Active Substance: CYCLOSPORINE
     Indication: Anaemia
     Dosage: 1 DOSAGE FORM, BID 1 DF (100 MG/ ML)
     Route: 065
     Dates: start: 202201
  9. CYCLOSPORINE [Suspect]
     Active Substance: CYCLOSPORINE
     Dosage: 3 ML (100 MG), Q12H
     Route: 048
     Dates: start: 202201
  10. METFORMIN [Concomitant]
     Active Substance: METFORMIN HYDROCHLORIDE
     Indication: Diabetes mellitus
     Dosage: 850 MG, BID
     Route: 065
     Dates: start: 20220112

REACTIONS (10)
  - Platelet count decreased [Unknown]
  - Platelet count increased [Recovering/Resolving]
  - Inflammation [Recovering/Resolving]
  - Headache [Recovering/Resolving]
  - Flatulence [Recovering/Resolving]
  - Abdominal pain upper [Recovering/Resolving]
  - Weight increased [Not Recovered/Not Resolved]
  - Product taste abnormal [Unknown]
  - Product use issue [Not Recovered/Not Resolved]
  - Off label use [Not Recovered/Not Resolved]

NARRATIVE: CASE EVENT DATE: 20211120
